FAERS Safety Report 14757940 (Version 2)
Quarter: 2019Q1

REPORT INFORMATION
  Report Type: Spontaneous
  Country: US (occurrence: US)
  Receive Date: 20180413
  Receipt Date: 20190308
  Transmission Date: 20190417
  Serious: Yes (Other)
  Sender: FDA-Public Use
  Company Number: US-ASTRAZENECA-2018SE44452

PATIENT
  Sex: Female

DRUGS (11)
  1. ATORVASTATIN [Concomitant]
     Active Substance: ATORVASTATIN
  2. CARVEDILOL. [Concomitant]
     Active Substance: CARVEDILOL
  3. DIGOXIN. [Concomitant]
     Active Substance: DIGOXIN
  4. ALBUTEROL. [Concomitant]
     Active Substance: ALBUTEROL
  5. ONGLYZA [Suspect]
     Active Substance: SAXAGLIPTIN HYDROCHLORIDE
     Indication: TYPE 2 DIABETES MELLITUS
     Route: 048
     Dates: start: 2010
  6. GABAPENTIN. [Concomitant]
     Active Substance: GABAPENTIN
  7. KOMBIGLYZE XR [Suspect]
     Active Substance: METFORMIN HYDROCHLORIDE\SAXAGLIPTIN HYDROCHLORIDE
     Indication: TYPE 2 DIABETES MELLITUS
     Route: 048
     Dates: start: 2010
  8. ASPIRIN. [Concomitant]
     Active Substance: ASPIRIN
  9. CITALOPRAM [Concomitant]
     Active Substance: CITALOPRAM HYDROBROMIDE
  10. LISINOPRIL. [Concomitant]
     Active Substance: LISINOPRIL
  11. BUDESONIDE. [Concomitant]
     Active Substance: BUDESONIDE

REACTIONS (4)
  - Cardiac failure congestive [Unknown]
  - Cardiac failure [Unknown]
  - Arrhythmia [Unknown]
  - Cardiovascular disorder [Unknown]
